FAERS Safety Report 14961106 (Version 2)
Quarter: 2018Q2

REPORT INFORMATION
  Report Type: Spontaneous
  Country: FI (occurrence: FI)
  Receive Date: 20180601
  Receipt Date: 20180612
  Transmission Date: 20180711
  Serious: Yes (Life-Threatening, Hospitalization)
  Sender: FDA-Public Use
  Company Number: FI-ROCHE-2127430

PATIENT
  Age: 48 Year
  Sex: Female

DRUGS (15)
  1. AVASTIN [Suspect]
     Active Substance: BEVACIZUMAB
     Indication: OVARIAN CANCER STAGE IV
     Dosage: 4 TIMES (GEMCITABINE, CARBOPLATIN, AVASTIN)
     Route: 042
     Dates: start: 2014, end: 20150121
  2. CARBOPLATIN. [Concomitant]
     Active Substance: CARBOPLATIN
     Dosage: 4 TIMES (GEMCITABINE, CARBOPLATIN, AVASTIN)
     Route: 065
     Dates: start: 2014, end: 20150121
  3. CAELYX [Concomitant]
     Active Substance: DOXORUBICIN HYDROCHLORIDE
     Indication: OVARIAN CANCER STAGE IV
     Dosage: 7 TIMES (CAELYX+CARBOPLATIN)
     Route: 065
     Dates: start: 20150922, end: 20160322
  4. PACLITAXEL. [Concomitant]
     Active Substance: PACLITAXEL
     Dosage: 6 TIMES (PACLITAXEL+CARBOPLATIN)
     Route: 065
     Dates: start: 20170425, end: 20170810
  5. GEMCITABINE [Concomitant]
     Active Substance: GEMCITABINE\GEMCITABINE HYDROCHLORIDE
     Indication: OVARIAN CANCER STAGE IV
     Dosage: 4 TIMES (GEMCITABINE, CARBOPLATIN, AVASTIN)
     Route: 065
     Dates: start: 2014, end: 20150121
  6. AVASTIN [Suspect]
     Active Substance: BEVACIZUMAB
     Dosage: MAINTENANCE TREATMENT
     Route: 042
     Dates: start: 2015
  7. CARBOPLATIN. [Concomitant]
     Active Substance: CARBOPLATIN
     Indication: OVARIAN CANCER STAGE IV
     Dosage: 6 TIMES (PACLITAXEL+CARBOPLATIN)
     Route: 065
     Dates: start: 2014, end: 2014
  8. TOPOTECAN [Concomitant]
     Active Substance: TOPOTECAN HYDROCHLORIDE
     Indication: OVARIAN CANCER STAGE IV
     Dosage: TOPOTECAN+AVASTIN
     Route: 065
     Dates: start: 20180115, end: 20180320
  9. CARBOPLATIN. [Concomitant]
     Active Substance: CARBOPLATIN
     Dosage: 7 TIMES (CAELYX+CARBOPLATIN)
     Route: 065
     Dates: start: 20150922, end: 20160322
  10. NIRAPARIB [Concomitant]
     Active Substance: NIRAPARIB
     Indication: OVARIAN CANCER STAGE IV
  11. PACLITAXEL. [Concomitant]
     Active Substance: PACLITAXEL
     Indication: OVARIAN CANCER STAGE IV
     Dosage: 6 TIMES (PACLITAXEL+CARBOPLATIN)
     Route: 065
     Dates: start: 2014, end: 2014
  12. AVASTIN [Suspect]
     Active Substance: BEVACIZUMAB
     Dosage: TOPOTECAN+AVASTIN
     Route: 042
     Dates: start: 20180115, end: 20180320
  13. PACLITAXEL. [Concomitant]
     Active Substance: PACLITAXEL
     Dosage: SINGLE TREATMENT
     Route: 065
     Dates: start: 2017
  14. CARBOPLATIN. [Concomitant]
     Active Substance: CARBOPLATIN
     Dosage: 6 TIMES (PACLITAXEL+CARBOPLATIN)
     Route: 065
     Dates: start: 20170425, end: 20170810
  15. AVASTIN [Suspect]
     Active Substance: BEVACIZUMAB
     Route: 042
     Dates: start: 20170913, end: 20171129

REACTIONS (5)
  - Peritonitis [Recovered/Resolved]
  - Intestinal adenocarcinoma [Recovered/Resolved]
  - Intestinal perforation [Recovered/Resolved]
  - Peritoneal disorder [Recovered/Resolved]
  - Pelvic abscess [Recovered/Resolved]

NARRATIVE: CASE EVENT DATE: 20171207
